FAERS Safety Report 7310171-5 (Version None)
Quarter: 2011Q1

REPORT INFORMATION
  Report Type: 
  Country: None (occurrence: None)
  Receive Date: 20110224
  Receipt Date: 20110216
  Transmission Date: 20110831
  Serious: No
  Sender: FDA-Public Use
  Company Number: US-PFIZER INC-2011008844

PATIENT
  Age: 25 Year
  Sex: Female
  Weight: 104 kg

DRUGS (1)
  1. CHILDREN'S ADVIL [Suspect]
     Indication: NASOPHARYNGITIS
     Dosage: 4 DF, 1X/DAY
     Route: 048
     Dates: start: 20100109, end: 20100109

REACTIONS (4)
  - HOT FLUSH [None]
  - DYSPEPSIA [None]
  - ABDOMINAL PAIN UPPER [None]
  - PHYSICAL PRODUCT LABEL ISSUE [None]
